FAERS Safety Report 13446815 (Version 4)
Quarter: 2021Q3

REPORT INFORMATION
  Report Type: Spontaneous
  Country: US (occurrence: US)
  Receive Date: 20170417
  Receipt Date: 20210818
  Transmission Date: 20211014
  Serious: Yes (Hospitalization)
  Sender: FDA-Public Use
  Company Number: US-JNJFOC-20170416841

PATIENT
  Age: 34 Year
  Sex: Male

DRUGS (7)
  1. LEVAQUIN [Suspect]
     Active Substance: LEVOFLOXACIN
     Indication: PNEUMONIA
     Route: 048
     Dates: start: 20010215
  2. LEVAQUIN [Suspect]
     Active Substance: LEVOFLOXACIN
     Route: 048
     Dates: start: 20041203
  3. LEVAQUIN [Suspect]
     Active Substance: LEVOFLOXACIN
     Dosage: 10 DAYS
     Route: 048
     Dates: start: 20090109, end: 200901
  4. LEVAQUIN [Suspect]
     Active Substance: LEVOFLOXACIN
     Route: 048
     Dates: start: 20020109
  5. LEVAQUIN [Suspect]
     Active Substance: LEVOFLOXACIN
     Indication: BRONCHITIS
     Dosage: FOR ONE MONTH
     Route: 048
     Dates: start: 19990217, end: 199903
  6. LEVAQUIN [Suspect]
     Active Substance: LEVOFLOXACIN
     Route: 048
     Dates: start: 20061010
  7. LEVAQUIN [Suspect]
     Active Substance: LEVOFLOXACIN
     Indication: PROSTATITIS
     Dosage: LEVOFLOXACIN 5W
     Route: 048
     Dates: start: 20010619

REACTIONS (5)
  - Myocardial infarction [Unknown]
  - Aortic dissection [Recovering/Resolving]
  - Aortic aneurysm [Unknown]
  - Cardiac failure congestive [Unknown]
  - Renal injury [Unknown]

NARRATIVE: CASE EVENT DATE: 20001205
